FAERS Safety Report 7071808-1 (Version None)
Quarter: 2010Q4

REPORT INFORMATION
  Report Type: 
  Country: None (occurrence: None)
  Receive Date: 20101029
  Receipt Date: 20091026
  Transmission Date: 20110411
  Serious: No
  Sender: FDA-Public Use
  Company Number: A0813378A

PATIENT
  Age: 82 Year
  Sex: Female

DRUGS (4)
  1. ADVAIR DISKUS 100/50 [Suspect]
     Indication: CHRONIC OBSTRUCTIVE PULMONARY DISEASE
     Dosage: 1PUFF TWICE PER DAY
     Route: 055
     Dates: start: 20001016, end: 20091018
  2. COMBIVENT [Concomitant]
  3. HEART MEDICATION [Concomitant]
  4. IRON SUPPLEMENT [Concomitant]

REACTIONS (2)
  - DYSPNOEA [None]
  - HYPERSENSITIVITY [None]
